FAERS Safety Report 9146852 (Version 1)
Quarter: 2013Q1

REPORT INFORMATION
  Report Type: Spontaneous
  Country: US (occurrence: None)
  Receive Date: 20130219
  Receipt Date: 20130219
  Transmission Date: 20140127
  Serious: Yes (Death)
  Sender: FDA-Public Use
  Company Number: 2013/027

PATIENT
  Age: 81 Year
  Sex: Male

DRUGS (12)
  1. AMLODIPINE (NO PREF. NAME) 5 MG [Suspect]
     Indication: HYPERTENSION
     Dosage: 5 MG,  OD  + UNK
  2. EPOETIN ALFA [Suspect]
     Indication: ANAEMIA
     Dosage: 4000  IU,  WEEKLY  +  IV
     Route: 042
  3. ALLOPURINOL [Concomitant]
  4. ASPIRIN [Concomitant]
  5. CEPHALEXIN [Concomitant]
  6. CYPROTERONE [Concomitant]
  7. DEXAMETHASONE [Concomitant]
  8. FENTANYL [Concomitant]
  9. LANSOPRAZOLE [Concomitant]
  10. PARACETAMOL [Concomitant]
  11. METOCLOPRAMIDE [Concomitant]
  12. SEVELAMER [Concomitant]

REACTIONS (1)
  - Pneumonia [None]
